FAERS Safety Report 22055980 (Version 2)
Quarter: 2023Q1

REPORT INFORMATION
  Report Type: Spontaneous
  Country: FR (occurrence: FR)
  Receive Date: 20230302
  Receipt Date: 20230314
  Transmission Date: 20230417
  Serious: Yes (Hospitalization, Other)
  Sender: FDA-Public Use
  Company Number: FR-TEVA-2023-FR-2860673

PATIENT
  Age: 81 Year
  Sex: Female

DRUGS (12)
  1. SIMVASTATIN [Interacting]
     Active Substance: SIMVASTATIN
     Indication: Dyslipidaemia
     Dosage: SHE HAD TAKEN SIMVASTATIN FOR OVER TWENTY YEARS, AND SIMVASTATIN 20 MG PLUS EZETIMIBE 10 MG FOR 5 YE
     Route: 065
  2. EZETIMIBE [Interacting]
     Active Substance: EZETIMIBE
     Indication: Dyslipidaemia
     Dosage: FOR FIVE YEARS , 10 MG
     Route: 065
  3. LETROZOLE [Suspect]
     Active Substance: LETROZOLE
     Indication: Breast cancer metastatic
     Dosage: 2.5 MILLIGRAM DAILY; 2,5 MG PER DAY
     Route: 065
     Dates: start: 202112
  4. LETROZOLE [Suspect]
     Active Substance: LETROZOLE
     Indication: Metastases to bone
     Dosage: MONOTHERAPY
     Route: 065
  5. TAMOXIFEN [Suspect]
     Active Substance: TAMOXIFEN
     Indication: Breast cancer metastatic
     Route: 065
  6. TAMOXIFEN [Suspect]
     Active Substance: TAMOXIFEN
     Indication: Metastases to bone
  7. FENUGREEK LEAF\HERBALS [Interacting]
     Active Substance: FENUGREEK LEAF\HERBALS
     Indication: Phytotherapy
     Dosage: SHE WAS SELF MEDICATING WITH FENUGREEK (TRIGONELLA FOENUM-GRAECUM)
     Route: 065
  8. PALBOCICLIB [Interacting]
     Active Substance: PALBOCICLIB
     Indication: Breast cancer metastatic
     Dosage: 125 MILLIGRAM DAILY; FOR 21 DAYS/28 , 125 MG ONCE A DAY
     Route: 065
     Dates: start: 20211204
  9. APIXABAN [Concomitant]
     Active Substance: APIXABAN
     Indication: Product used for unknown indication
     Route: 065
  10. VENLAFAXINE [Concomitant]
     Active Substance: VENLAFAXINE HYDROCHLORIDE
     Indication: Product used for unknown indication
     Route: 065
  11. LEVOTHYROXINE [Concomitant]
     Active Substance: LEVOTHYROXINE
     Indication: Product used for unknown indication
     Route: 065
  12. ALLOPURINOL [Concomitant]
     Active Substance: ALLOPURINOL
     Indication: Product used for unknown indication
     Route: 065

REACTIONS (6)
  - Rhabdomyolysis [Recovering/Resolving]
  - Necrotising myositis [Recovering/Resolving]
  - Quadriparesis [Recovering/Resolving]
  - Dropped head syndrome [Recovering/Resolving]
  - Drug interaction [Unknown]
  - Drug ineffective [Unknown]

NARRATIVE: CASE EVENT DATE: 20211201
